FAERS Safety Report 13889541 (Version 1)
Quarter: 2017Q3

REPORT INFORMATION
  Report Type: Spontaneous
  Country: US (occurrence: US)
  Receive Date: 20170822
  Receipt Date: 20170822
  Transmission Date: 20171127
  Serious: No
  Sender: FDA-Public Use
  Company Number: US-ROCHE-1157431

PATIENT
  Sex: Male
  Weight: 63.56 kg

DRUGS (4)
  1. ACTEMRA [Suspect]
     Active Substance: TOCILIZUMAB
     Indication: RHEUMATOID ARTHRITIS
     Route: 042
     Dates: start: 20110928
  2. REMICADE [Concomitant]
     Active Substance: INFLIXIMAB
  3. ORENCIA [Concomitant]
     Active Substance: ABATACEPT
     Indication: RHEUMATOID ARTHRITIS
  4. RITUXAN [Concomitant]
     Active Substance: RITUXIMAB

REACTIONS (2)
  - Blood triglycerides increased [Unknown]
  - Arthralgia [Not Recovered/Not Resolved]
